FAERS Safety Report 7582223-6 (Version None)
Quarter: 2011Q2

REPORT INFORMATION
  Report Type: 
  Country: None (occurrence: None)
  Receive Date: 20110622
  Receipt Date: 20110607
  Transmission Date: 20111010
  Serious: Yes (Hospitalization)
  Sender: FDA-Public Use
  Company Number: 2011MA006911

PATIENT
  Age: 61 Year
  Sex: Female

DRUGS (1)
  1. TRAMADOL HYDROCHLORIDE [Suspect]
     Indication: PAIN
     Dosage: 29 MG; QD; INTH
     Route: 037
     Dates: end: 20021101

REACTIONS (7)
  - NAUSEA [None]
  - GAIT DISTURBANCE [None]
  - HYPOAESTHESIA [None]
  - SPINAL OSTEOARTHRITIS [None]
  - INADEQUATE ANALGESIA [None]
  - SPINAL COLUMN STENOSIS [None]
  - VOMITING [None]
